FAERS Safety Report 4456050-2 (Version None)
Quarter: 2004Q3

REPORT INFORMATION
  Report Type: 
  Country: None (occurrence: None)
  Receive Date: 20040920
  Receipt Date: 20040902
  Transmission Date: 20050211
  Serious: Yes (Hospitalization)
  Sender: FDA-Public Use
  Company Number: 204220

PATIENT
  Sex: Male

DRUGS (1)
  1. AVONEX [Suspect]
     Indication: MULTIPLE SCLEROSIS

REACTIONS (6)
  - ASTHENIA [None]
  - COGNITIVE DISORDER [None]
  - DISEASE RECURRENCE [None]
  - DYSSTASIA [None]
  - FALL [None]
  - PYREXIA [None]
